FAERS Safety Report 8015645 (Version 2)
Quarter: 2013Q3

REPORT INFORMATION
  Report Type: Report from Study
  Country: MX (occurrence: MX)
  Receive Date: 20110629
  Receipt Date: 20130702
  Transmission Date: 20140515
  Serious: Yes (Other)
  Sender: FDA-Public Use
  Company Number: PHHY2011MX54564

PATIENT
  Age: 73 Year
  Sex: Female

DRUGS (2)
  1. ACLASTA [Suspect]
     Indication: OSTEOPOROSIS
     Dosage: 5 MG/100 ML PER YEAR
     Route: 042
     Dates: start: 201006
  2. HORMONES [Concomitant]
     Dosage: UNK UKN, UNK

REACTIONS (5)
  - Poisoning [Recovered/Resolved]
  - Skin swelling [Recovered/Resolved]
  - Pruritus [Recovered/Resolved]
  - Type I hypersensitivity [Unknown]
  - Anaphylactic reaction [Unknown]
